FAERS Safety Report 4929336-2 (Version None)
Quarter: 2006Q1

REPORT INFORMATION
  Report Type: 
  Country: None (occurrence: None)
  Receive Date: 20060223
  Receipt Date: 20060201
  Transmission Date: 20060701
  Serious: Yes (Death, Hospitalization, Disabling, Other)
  Sender: FDA-Public Use
  Company Number: US200511002391

PATIENT
  Age: 58 Year
  Sex: Female

DRUGS (3)
  1. CYMBALTA [Suspect]
     Dates: start: 20051101, end: 20051101
  2. CORGARD [Concomitant]
  3. HYDROCHLOROTHIAZIDE [Concomitant]

REACTIONS (4)
  - BRAIN DAMAGE [None]
  - CONVULSION [None]
  - HYPONATRAEMIA [None]
  - LOSS OF CONSCIOUSNESS [None]
